FAERS Safety Report 9482172 (Version 1)
Quarter: 2013Q3

REPORT INFORMATION
  Report Type: Report from Study
  Country: CA (occurrence: CA)
  Receive Date: 20130828
  Receipt Date: 20130828
  Transmission Date: 20140515
  Serious: Yes (Other)
  Sender: FDA-Public Use
  Company Number: CA-JNJFOC-20130812123

PATIENT
  Age: 70 Year
  Sex: Female
  Weight: 110 kg

DRUGS (13)
  1. REMICADE [Suspect]
     Indication: CROHN^S DISEASE
     Route: 042
  2. COSOPT EYE DROPS [Concomitant]
     Route: 065
  3. LATANOPROST [Concomitant]
     Dosage: DAILY
     Route: 065
  4. GABAPENTIN [Concomitant]
     Route: 065
  5. METOPROLOL [Concomitant]
     Route: 065
  6. COVERSYL [Concomitant]
     Dosage: DAILY
     Route: 065
  7. AMLODIPINE [Concomitant]
     Dosage: DAILY
     Route: 065
  8. IMODIUM [Concomitant]
     Dosage: DAILY
     Route: 065
  9. PANTOPRAZOLE [Concomitant]
     Dosage: DAILY
     Route: 065
  10. VITAMIN D [Concomitant]
     Dosage: DAILY
     Route: 065
  11. VITAMIN B 12 [Concomitant]
     Dosage: MONTHLY
     Route: 030
  12. ACETAMINOPHEN [Concomitant]
     Route: 065
  13. TRAMACET [Concomitant]
     Route: 065

REACTIONS (4)
  - Eye haemorrhage [Unknown]
  - Eye inflammation [Recovered/Resolved]
  - Oropharyngeal pain [Recovered/Resolved]
  - Ear pain [Recovered/Resolved]
